FAERS Safety Report 23312324 (Version 1)
Quarter: 2023Q4

REPORT INFORMATION
  Report Type: Spontaneous
  Country: KR (occurrence: KR)
  Receive Date: 20231219
  Receipt Date: 20231219
  Transmission Date: 20240110
  Serious: Yes (Death, Hospitalization, Other)
  Sender: FDA-Public Use
  Company Number: KR-UCBSA-2023059113

PATIENT
  Sex: Female
  Weight: 68.4 kg

DRUGS (11)
  1. KEPPRA [Suspect]
     Active Substance: LEVETIRACETAM
     Indication: Tuberculosis
     Dosage: 1.5 DOSAGE FORM, 2X/DAY (BID)
     Route: 042
     Dates: start: 20221228, end: 20221231
  2. KEPPRA [Suspect]
     Active Substance: LEVETIRACETAM
     Indication: Off label use
     Dosage: UNK
  3. LACOSAMIDE [Suspect]
     Active Substance: LACOSAMIDE
     Indication: Tuberculosis
     Dosage: 0.5 DOSAGE FORM, 2X/DAY (BID)
     Route: 042
     Dates: start: 20221228, end: 20230106
  4. LACOSAMIDE [Suspect]
     Active Substance: LACOSAMIDE
     Indication: Off label use
  5. LEVOFLOXACIN [Suspect]
     Active Substance: LEVOFLOXACIN
     Indication: Tuberculosis
     Dosage: 1 DOSAGE FORM, ONCE DAILY (QD)
     Route: 042
     Dates: start: 20221203, end: 20230116
  6. MEROPENEM SODIUM CARBONATE [Suspect]
     Active Substance: MEROPENEM SODIUM CARBONATE
     Indication: Tuberculosis
     Dosage: 2 DOSAGE FORM, 2X/DAY (BID)
     Route: 042
     Dates: start: 20221217, end: 20230116
  7. TEICOPLANIN [Suspect]
     Active Substance: TEICOPLANIN
     Indication: Product used for unknown indication
     Dosage: UNK
  8. PHENOBARBITAL [Suspect]
     Active Substance: PHENOBARBITAL
     Indication: Product used for unknown indication
     Dosage: UNK
  9. PYRAZINAMIDE [Suspect]
     Active Substance: PYRAZINAMIDE
     Indication: Product used for unknown indication
     Dosage: UNK
  10. RIFAMPIN [Suspect]
     Active Substance: RIFAMPIN
     Indication: Product used for unknown indication
     Dosage: UNK
  11. PYRIDOXINE HYDROCHLORIDE [Suspect]
     Active Substance: PYRIDOXINE HYDROCHLORIDE
     Indication: Product used for unknown indication
     Dosage: UNK

REACTIONS (2)
  - Drug reaction with eosinophilia and systemic symptoms [Fatal]
  - Off label use [Unknown]

NARRATIVE: CASE EVENT DATE: 20221228
